FAERS Safety Report 13414662 (Version 7)
Quarter: 2018Q2

REPORT INFORMATION
  Report Type: Report from Study
  Country: US (occurrence: US)
  Receive Date: 20170406
  Receipt Date: 20180530
  Transmission Date: 20180711
  Serious: Yes (Hospitalization)
  Sender: FDA-Public Use
  Company Number: US-TEVA-755440USA

PATIENT
  Age: 91 Year
  Sex: Male
  Weight: 73 kg

DRUGS (19)
  1. LIPITOR [Concomitant]
     Active Substance: ATORVASTATIN CALCIUM
     Route: 065
  2. CARDURA [Concomitant]
     Active Substance: DOXAZOSIN MESYLATE
     Route: 065
  3. FINASTERIDE. [Suspect]
     Active Substance: FINASTERIDE
     Route: 065
  4. COMPAZINE [Concomitant]
     Active Substance: PROCHLORPERAZINE MALEATE
     Route: 065
  5. CALCIUM CARBONATE AND VITAMIN D [Concomitant]
     Active Substance: CALCIUM CARBONATE\VITAMIN D
     Dates: start: 20161130
  6. TRADJENTA [Concomitant]
     Active Substance: LINAGLIPTIN
     Route: 065
  7. SENOKOT [Concomitant]
     Active Substance: SENNOSIDES
     Route: 065
  8. AMLODIPINE [Concomitant]
     Active Substance: AMLODIPINE BESYLATE
     Route: 065
     Dates: start: 20111110
  9. COLACE [Concomitant]
     Active Substance: DOCUSATE SODIUM
     Route: 065
  10. ENZALUTAMIDE [Suspect]
     Active Substance: ENZALUTAMIDE
     Indication: PROSTATE CANCER
     Dosage: 160 MILLIGRAM DAILY;
     Route: 048
     Dates: start: 20160929
  11. PANTOPRAZOLE [Concomitant]
     Active Substance: PANTOPRAZOLE
     Route: 065
     Dates: start: 20160926
  12. SIMVASTATIN. [Concomitant]
     Active Substance: SIMVASTATIN
     Route: 065
     Dates: start: 20160926
  13. MIRALAX [Concomitant]
     Active Substance: POLYETHYLENE GLYCOL 3350
     Route: 065
  14. SYMBICORT [Concomitant]
     Active Substance: BUDESONIDE\FORMOTEROL FUMARATE DIHYDRATE
     Route: 065
     Dates: start: 20160926
  15. DOXAZOSIN [Concomitant]
     Active Substance: DOXAZOSIN\DOXAZOSIN MESYLATE
     Route: 065
     Dates: start: 20111110
  16. DUTASTERIDE. [Suspect]
     Active Substance: DUTASTERIDE
     Indication: PROSTATE CANCER
     Dosage: .5 MILLIGRAM DAILY;
     Route: 048
     Dates: start: 20160929
  17. ATORVASTATIN [Concomitant]
     Active Substance: ATORVASTATIN
     Dates: start: 20170209
  18. SITAGLIPTIN [Concomitant]
     Active Substance: SITAGLIPTIN
     Route: 065
     Dates: start: 20160428
  19. DECADRON [Concomitant]
     Active Substance: DEXAMETHASONE
     Route: 065

REACTIONS (6)
  - Faecal volume decreased [Unknown]
  - Abdominal pain [Unknown]
  - Small intestinal obstruction [Recovered/Resolved]
  - Vomiting [Unknown]
  - Nausea [Unknown]
  - Hypoglycaemia [Unknown]

NARRATIVE: CASE EVENT DATE: 20170315
